FAERS Safety Report 14645849 (Version 2)
Quarter: 2018Q2

REPORT INFORMATION
  Report Type: Spontaneous
  Country: US (occurrence: US)
  Receive Date: 20180316
  Receipt Date: 20180416
  Transmission Date: 20180711
  Serious: No
  Sender: FDA-Public Use
  Company Number: US-ALEXION PHARMACEUTICALS INC.-A201800636

PATIENT
  Sex: Female
  Weight: 72.4 kg

DRUGS (2)
  1. SOLIRIS [Suspect]
     Active Substance: ECULIZUMAB
     Indication: ATYPICAL HAEMOLYTIC URAEMIC SYNDROME
     Dosage: 900 MG, QW
     Route: 042
     Dates: start: 20171206, end: 20171229
  2. SOLIRIS [Suspect]
     Active Substance: ECULIZUMAB
     Dosage: 1200 MG, Q2W
     Route: 042
     Dates: start: 20180105

REACTIONS (6)
  - Device malfunction [Unknown]
  - Pain [Unknown]
  - Injection site swelling [Unknown]
  - Injection site inflammation [Unknown]
  - Poor venous access [Unknown]
  - Injection site discomfort [Unknown]
